FAERS Safety Report 7525062-4 (Version None)
Quarter: 2011Q2

REPORT INFORMATION
  Report Type: 
  Country: None (occurrence: None)
  Receive Date: 20110606
  Receipt Date: 20110523
  Transmission Date: 20111010
  Serious: Yes (Hospitalization, Other)
  Sender: FDA-Public Use
  Company Number: US-ELI_LILLY_AND_COMPANY-US201007004860

PATIENT
  Sex: Female

DRUGS (33)
  1. VITAMIN D [Concomitant]
  2. ALBUTEROL SULFATE AUTOHALER [Concomitant]
  3. FORTEO [Suspect]
     Dosage: 20 UG, DAILY (1/D)
  4. PREDNISONE [Concomitant]
     Dosage: 10 MG, WEEKLY (1/W)
     Route: 065
  5. THEO-DUR [Concomitant]
  6. SINGULAIR [Concomitant]
  7. OMEPRAZOLE [Concomitant]
  8. GABAPENTIN [Concomitant]
  9. AMLODIPINE [Concomitant]
  10. PREDNISONE [Concomitant]
     Dosage: 20 MG, WEEKLY (1/W)
     Route: 065
  11. AMLODIPINE BESYLATE [Concomitant]
     Indication: BLOOD PRESSURE
  12. AMBIEN [Concomitant]
  13. MULTIPLE VITAMINS [Concomitant]
  14. LACTULOSE [Concomitant]
  15. OXYCODONE HCL [Concomitant]
  16. FORTEO [Suspect]
     Dosage: 20 UG, QD
     Route: 065
  17. MAGNESIUM OXIDE [Concomitant]
  18. FUROSEMIDE [Concomitant]
  19. SPIRIVA [Concomitant]
  20. NYSTATIN [Concomitant]
  21. CALCIUM CITRATE W/VITAMIN D NOS [Concomitant]
  22. ADVAIR DISKUS 100/50 [Concomitant]
  23. CALCIUM CARBONATE [Concomitant]
  24. MONTELUKAST SODIUM [Concomitant]
  25. OXYCONTIN [Concomitant]
  26. POTASSIUM CHLORIDE [Concomitant]
  27. FORTEO [Suspect]
     Indication: OSTEOPOROSIS
     Dosage: 20 UG, DAILY (1/D)
     Route: 065
     Dates: start: 20100622
  28. PREDNISONE [Concomitant]
     Dosage: 20 MG, WEEKLY (1/W)
     Route: 065
  29. LIPITOR [Concomitant]
  30. TRAZODONE HCL [Concomitant]
  31. ZOLOFT [Concomitant]
  32. XANAX [Concomitant]
  33. DULCOLAX [Concomitant]

REACTIONS (23)
  - URINARY TRACT INFECTION [None]
  - BLOOD POTASSIUM DECREASED [None]
  - CONTUSION [None]
  - HYPERTENSION [None]
  - NODULE [None]
  - OEDEMA PERIPHERAL [None]
  - COMPRESSION FRACTURE [None]
  - CHRONIC OBSTRUCTIVE PULMONARY DISEASE [None]
  - PARAESTHESIA [None]
  - BACK PAIN [None]
  - ASTHENIA [None]
  - MUSCLE SPASMS [None]
  - CATARACT [None]
  - VOMITING [None]
  - ARTHRALGIA [None]
  - PANCREATITIS [None]
  - MEMORY IMPAIRMENT [None]
  - BLOOD MAGNESIUM DECREASED [None]
  - EMPHYSEMA [None]
  - VISUAL ACUITY REDUCED [None]
  - NAUSEA [None]
  - BLOOD CALCIUM INCREASED [None]
  - ABDOMINAL PAIN UPPER [None]
